FAERS Safety Report 5678599-7 (Version None)
Quarter: 2008Q1

REPORT INFORMATION
  Report Type: 
  Country: None (occurrence: None)
  Receive Date: 20080325
  Receipt Date: 20080313
  Transmission Date: 20080703
  Serious: Yes (Other)
  Sender: FDA-Public Use
  Company Number: PHHY2008JP02738

PATIENT
  Age: 5 Year
  Sex: Male

DRUGS (5)
  1. CYCLOSPORINE [Suspect]
     Indication: NEPHROTIC SYNDROME
  2. STEROIDS NOS [Suspect]
     Indication: NEPHROTIC SYNDROME
  3. MIZORIBINE [Concomitant]
     Indication: NEPHROTIC SYNDROME
  4. CYCLOPHOSPHAMIDE [Concomitant]
     Indication: NEPHROTIC SYNDROME
  5. MYCOPHENOLATE MOFETIL [Concomitant]
     Indication: NEPHROTIC SYNDROME
     Dosage: 1000 MG/M2/DAY

REACTIONS (3)
  - CONVULSION [None]
  - NEPHROTIC SYNDROME [None]
  - TOXIC ENCEPHALOPATHY [None]
